FAERS Safety Report 12737051 (Version 2)
Quarter: 2016Q4

REPORT INFORMATION
  Report Type: Spontaneous
  Country: US (occurrence: US)
  Receive Date: 20160912
  Receipt Date: 20161213
  Transmission Date: 20170207
  Serious: Yes (Death)
  Sender: FDA-Public Use
  Company Number: US-JNJFOC-20160908420

PATIENT
  Age: 81 Year
  Sex: Male

DRUGS (3)
  1. XARELTO [Suspect]
     Active Substance: RIVAROXABAN
     Indication: ATRIAL FIBRILLATION
     Dosage: FROM APPROXIMATELY 2011/2012
     Route: 048
     Dates: start: 201201, end: 20130916
  2. XARELTO [Suspect]
     Active Substance: RIVAROXABAN
     Indication: THROMBOSIS PROPHYLAXIS
     Dosage: FROM APPROXIMATELY 2011/2012
     Route: 048
     Dates: start: 201201, end: 20130916
  3. XARELTO [Suspect]
     Active Substance: RIVAROXABAN
     Indication: CEREBROVASCULAR ACCIDENT PROPHYLAXIS
     Dosage: FROM APPROXIMATELY 2011/2012
     Route: 048
     Dates: start: 201201, end: 20130916

REACTIONS (2)
  - Gastrointestinal haemorrhage [Fatal]
  - Rectal haemorrhage [Unknown]

NARRATIVE: CASE EVENT DATE: 20130915
